FAERS Safety Report 9891883 (Version 2)
Quarter: 2014Q1

REPORT INFORMATION
  Report Type: Spontaneous
  Country: NO (occurrence: NO)
  Receive Date: 20140212
  Receipt Date: 20140328
  Transmission Date: 20141002
  Serious: Yes (Death)
  Sender: FDA-Public Use
  Company Number: NO-BRISTOL-MYERS SQUIBB COMPANY-20137253

PATIENT
  Age: 42 Year
  Sex: Male

DRUGS (6)
  1. REYATAZ [Suspect]
     Indication: HIV TEST POSITIVE
     Route: 048
  2. NORVIR [Suspect]
     Indication: HIV TEST POSITIVE
     Route: 048
  3. TRUVADA [Suspect]
     Indication: HIV TEST POSITIVE
     Route: 048
  4. NEURONTIN [Concomitant]
     Route: 048
  5. ESCITALOPRAM [Concomitant]
     Route: 048
  6. SAROTEX [Concomitant]
     Route: 048

REACTIONS (1)
  - Circulatory collapse [Fatal]
